FAERS Safety Report 11271783 (Version 5)
Quarter: 2017Q1

REPORT INFORMATION
  Report Type: Report from Study
  Country: CA (occurrence: CA)
  Receive Date: 20150715
  Receipt Date: 20170206
  Transmission Date: 20170428
  Serious: Yes (Other)
  Sender: FDA-Public Use
  Company Number: CA-ROCHE-1608277

PATIENT
  Age: 75 Year
  Sex: Male
  Weight: 72.5 kg

DRUGS (7)
  1. N-ACETYLCYSTEINE [Concomitant]
     Active Substance: ACETYLCYSTEINE
  2. ESBRIET [Suspect]
     Active Substance: PIRFENIDONE
     Route: 048
     Dates: start: 20140822
  3. PREVACID [Concomitant]
     Active Substance: LANSOPRAZOLE
  4. ESBRIET [Suspect]
     Active Substance: PIRFENIDONE
     Indication: IDIOPATHIC PULMONARY FIBROSIS
     Route: 048
     Dates: start: 20140808
  5. PREDNISONE. [Concomitant]
     Active Substance: PREDNISONE
     Route: 048
  6. ESBRIET [Suspect]
     Active Substance: PIRFENIDONE
     Route: 048
     Dates: start: 20140815
  7. ESBRIET [Suspect]
     Active Substance: PIRFENIDONE
     Route: 048
     Dates: start: 20140208

REACTIONS (10)
  - Confusional state [Unknown]
  - Respiratory tract infection [Recovering/Resolving]
  - Dyspnoea [Unknown]
  - Blood pressure decreased [Unknown]
  - Pneumonia [Unknown]
  - Bradycardia [Unknown]
  - Activities of daily living impaired [Unknown]
  - Dysgeusia [Unknown]
  - Depression [Unknown]
  - Decreased appetite [Unknown]

NARRATIVE: CASE EVENT DATE: 20140314
